FAERS Safety Report 6921380-9 (Version None)
Quarter: 2010Q3

REPORT INFORMATION
  Report Type: 
  Country: None (occurrence: None)
  Receive Date: 20100812
  Receipt Date: 20100728
  Transmission Date: 20110219
  Serious: Yes (Hospitalization)
  Sender: FDA-Public Use
  Company Number: PHHY2010FR49699

PATIENT
  Age: 71 Year
  Sex: Male

DRUGS (4)
  1. NISIS [Suspect]
     Indication: HYPERTENSION
     Dosage: ONE DOSAGE FORM (160 MG) DAILY
     Route: 048
  2. VISKEN [Suspect]
     Dosage: UNK
     Route: 048
  3. BOOSTRIX (DIPHTH.+TETANUS+PERTUS.TOXOID/B.PERTUS.FILA.HAEM./PERTACTIN) [Suspect]
     Dosage: ONE INJECTION
     Dates: start: 20100606
  4. FUCIDINE CAP [Suspect]
     Dosage: 250 MG
     Route: 048
     Dates: start: 20100601, end: 20100601

REACTIONS (5)
  - BLOOD BILIRUBIN INCREASED [None]
  - CONFUSIONAL STATE [None]
  - DEPRESSED LEVEL OF CONSCIOUSNESS [None]
  - ENCEPHALOPATHY [None]
  - OBSESSIVE THOUGHTS [None]
